FAERS Safety Report 7258465-6 (Version None)
Quarter: 2011Q1

REPORT INFORMATION
  Report Type: 
  Country: None (occurrence: None)
  Receive Date: 20110129
  Receipt Date: 20100816
  Transmission Date: 20110831
  Serious: No
  Sender: FDA-Public Use
  Company Number: US-ABBOTT-10P-163-0665298-00

PATIENT
  Sex: Male
  Weight: 88.076 kg

DRUGS (6)
  1. QUESTRAN [Concomitant]
     Indication: PRODUCT USED FOR UNKNOWN INDICATION
  2. NASONEX [Concomitant]
     Indication: PRODUCT USED FOR UNKNOWN INDICATION
  3. IMODIUM [Concomitant]
     Indication: DIARRHOEA
  4. GASEX [Concomitant]
     Indication: PRODUCT USED FOR UNKNOWN INDICATION
  5. HUMIRA [Suspect]
     Indication: CROHN'S DISEASE
     Dates: start: 20080821
  6. UNKNOWN INHALER [Concomitant]
     Indication: DYSPNOEA
     Dates: start: 20080101, end: 20100101

REACTIONS (1)
  - DYSPNOEA EXERTIONAL [None]
